FAERS Safety Report 4423982-0 (Version None)
Quarter: 2004Q3

REPORT INFORMATION
  Report Type: 
  Country: None (occurrence: None)
  Receive Date: 20040812
  Receipt Date: 20040803
  Transmission Date: 20050211
  Serious: Yes (Other)
  Sender: FDA-Public Use
  Company Number: PHBS2004CA10400

PATIENT
  Sex: Male

DRUGS (2)
  1. NEORAL [Suspect]
     Indication: TRANSPLANT
     Route: 048
     Dates: start: 20030101
  2. TACROLIMUS [Suspect]
     Indication: TRANSPLANT

REACTIONS (3)
  - CATATONIA [None]
  - NAUSEA [None]
  - NERVOUS SYSTEM DISORDER [None]
